FAERS Safety Report 4936601-1 (Version None)
Quarter: 2006Q1

REPORT INFORMATION
  Report Type: 
  Country: None (occurrence: None)
  Receive Date: 20060307
  Receipt Date: 20050816
  Transmission Date: 20060701
  Serious: Yes (Hospitalization, Other)
  Sender: FDA-Public Use
  Company Number: US-MERCK-0508USA02962

PATIENT
  Age: 47 Year
  Sex: Male

DRUGS (7)
  1. AZULFIDINE [Concomitant]
     Route: 065
  2. VIOXX [Suspect]
     Route: 048
     Dates: start: 20010101
  3. VIOXX [Suspect]
     Route: 048
     Dates: start: 20010922
  4. VIOXX [Suspect]
     Route: 048
     Dates: start: 20040701
  5. WELLBUTRIN SR [Concomitant]
     Route: 065
  6. CALCIUM (UNSPECIFIED) AND VITAMIN D (UNSPECIFIED) [Concomitant]
     Route: 065
  7. HYDROCODONE HYDROCHLORIDE [Concomitant]
     Route: 065

REACTIONS (6)
  - ARTERIOSCLEROSIS CORONARY ARTERY [None]
  - CELLULITIS [None]
  - CHEST PAIN [None]
  - INJURY [None]
  - MYOCARDIAL INFARCTION [None]
  - TOOTHACHE [None]
